FAERS Safety Report 16963530 (Version 1)
Quarter: 2019Q4

REPORT INFORMATION
  Report Type: Spontaneous
  Country: CA (occurrence: CA)
  Receive Date: 20191025
  Receipt Date: 20191025
  Transmission Date: 20200122
  Serious: Yes (Other)
  Sender: FDA-Public Use
  Company Number: CA-TEVA-2019-CA-1126748

PATIENT
  Age: 21 Year
  Sex: Female

DRUGS (3)
  1. ETHINYL ESTRADIOL/NORGESTIMATE [Concomitant]
     Active Substance: ETHINYL ESTRADIOL\NORGESTIMATE
  2. LAMOTRIGINE. [Concomitant]
     Active Substance: LAMOTRIGINE
  3. ELETRIPTAN HYDROBROMIDE. [Suspect]
     Active Substance: ELETRIPTAN HYDROBROMIDE
     Indication: MIGRAINE
     Route: 048

REACTIONS (8)
  - Nausea [Recovered/Resolved]
  - Vomiting [Recovered/Resolved]
  - Limb discomfort [Recovered/Resolved]
  - Chest discomfort [Recovered/Resolved]
  - Hypoaesthesia [Recovered/Resolved]
  - Drug ineffective [Recovered/Resolved]
  - Dyspnoea [Recovered/Resolved]
  - Anxiety [Recovered/Resolved]
